FAERS Safety Report 8386768-0 (Version None)
Quarter: 2012Q2

REPORT INFORMATION
  Report Type: 
  Country: None (occurrence: None)
  Receive Date: 20120525
  Receipt Date: 20120515
  Transmission Date: 20120825
  Serious: Yes (Hospitalization, Other)
  Sender: FDA-Public Use
  Company Number: US-ASTRAZENECA-2012SE31027

PATIENT
  Age: 76 Year
  Sex: Female
  Weight: 83.9 kg

DRUGS (10)
  1. SEROQUEL [Suspect]
     Indication: DEPRESSION
     Route: 048
  2. AMBIEN [Suspect]
     Route: 065
  3. SIMVASTATIN [Concomitant]
     Indication: BLOOD CHOLESTEROL ABNORMAL
  4. AMBIEN [Suspect]
     Indication: SLEEP DISORDER
     Route: 065
  5. WELLBUTRIN [Concomitant]
     Indication: DEPRESSION
  6. SEROQUEL [Suspect]
     Dosage: HALF TABLET OF 50 MG
     Route: 048
  7. PRADAXA [Concomitant]
     Indication: ANTICOAGULANT THERAPY
  8. SINGULAIR [Concomitant]
     Indication: SINUSITIS
  9. SINGULAIR [Concomitant]
     Indication: HYPERSENSITIVITY
  10. LOPRESSOR [Concomitant]
     Indication: CARDIAC DISORDER

REACTIONS (7)
  - SINUSITIS [None]
  - HEADACHE [None]
  - DYSPEPSIA [None]
  - APHAGIA [None]
  - ABDOMINAL DISCOMFORT [None]
  - WITHDRAWAL SYNDROME [None]
  - IMPULSE-CONTROL DISORDER [None]
